FAERS Safety Report 9969994 (Version 1)
Quarter: 2014Q1

REPORT INFORMATION
  Report Type: Spontaneous
  Country: FR (occurrence: None)
  Receive Date: 20140304
  Receipt Date: 20140304
  Transmission Date: 20141002
  Serious: Yes (Life-Threatening, Hospitalization, Other)
  Sender: FDA-Public Use
  Company Number: ADR-2014-00317

PATIENT
  Age: 25 Year
  Sex: Male

DRUGS (1)
  1. BACLOFEN [Suspect]
     Indication: ALCOHOLISM
     Dosage: DAY

REACTIONS (2)
  - Hypertension [None]
  - Mydriasis [None]
